FAERS Safety Report 9827138 (Version 1)
Quarter: 2013Q4

REPORT INFORMATION
  Report Type: Spontaneous
  Country: US (occurrence: None)
  Receive Date: 20131112
  Receipt Date: 20131112
  Transmission Date: 20140711
  Serious: No
  Sender: FDA-Public Use
  Company Number: US-013352

PATIENT
  Age: 56 Year
  Sex: Female

DRUGS (4)
  1. PICO-SALAX (NOT SPECIFIED) [Suspect]
     Dosage: 1ST DOSE OCTOBER 2013 AT 1730 ; SECOND DOSE THE MORNING ON 11 OCTOBER 2013)
     Dates: start: 20131010, end: 20131011
  2. SIMVASTATIN [Concomitant]
  3. TYLENON W/ CODEINE NO. 3 [Concomitant]
  4. CHILDREN^S CHEWABLE VITAMINS [Concomitant]

REACTIONS (1)
  - Drug ineffective [None]
